FAERS Safety Report 8696272 (Version 2)
Quarter: 2012Q4

REPORT INFORMATION
  Report Type: 
  Country: US (occurrence: US)
  Receive Date: 20120801
  Receipt Date: 20120830
  Transmission Date: 20130627
  Serious: Yes (Other)
  Sender: FDA-Public Use
  Company Number: US-SANOFI-AVENTIS-2012SA052449

PATIENT
  Age: 77 Year
  Sex: Male
  Weight: 127 kg

DRUGS (23)
  1. PLAVIX [Suspect]
     Indication: TRANSIENT ISCHAEMIC ATTACK
     Route: 048
  2. PLAVIX [Suspect]
     Indication: STROKE
     Route: 048
  3. PROTONIX [Concomitant]
     Route: 048
  4. NEURONTIN [Concomitant]
     Route: 048
  5. NEURONTIN [Concomitant]
     Route: 048
  6. PRAMIPEXOLE DIHYDROCHLORIDE [Concomitant]
     Route: 048
  7. SIMVASTATIN [Concomitant]
     Route: 048
  8. POTASSIUM CHLORIDE [Concomitant]
     Dosage: four tablets twice a day.
     Route: 048
  9. POTASSIUM CHLORIDE [Concomitant]
     Dosage: one tablets (20meq) twice a day.
     Route: 048
  10. ADVAIR DISKUS [Concomitant]
     Dosage: 250-50 mcg/dose Aerosol powder breath
activated twice a day.
     Route: 055
  11. PRAMIPEXOLE DIHYDROCHLORIDE [Concomitant]
     Route: 048
  12. ENALAPRIL MALEATE [Concomitant]
     Route: 048
  13. ENALAPRIL MALEATE [Concomitant]
     Route: 048
  14. OXYBUTYNIN CHLORIDE [Concomitant]
     Route: 048
  15. SPIRIVA ^BOEHRINGER INGELHEIM^ [Concomitant]
     Route: 048
  16. LASIX [Concomitant]
     Dosage: 1.5 tablets twice a day.
     Route: 048
  17. LASIX [Concomitant]
     Dosage: two tablets once a day.
     Route: 048
  18. METOLAZONE [Concomitant]
     Route: 048
  19. SPIRONOLACTONE [Concomitant]
     Route: 048
  20. PRO-AIR [Concomitant]
     Dosage: aerosol solution 2 puffs as needed 3-4 times a day.
     Route: 055
  21. ISOPTIN [Concomitant]
     Route: 048
  22. MIRTAZAPINE [Concomitant]
     Route: 048
  23. MUCINEX [Concomitant]
     Indication: PULMONARY CONGESTION
     Route: 048

REACTIONS (3)
  - Dysphagia [Unknown]
  - Gastrooesophageal reflux disease [Unknown]
  - Contusion [Unknown]
